FAERS Safety Report 24079143 (Version 1)
Quarter: 2024Q3

REPORT INFORMATION
  Report Type: Spontaneous
  Country: US (occurrence: US)
  Receive Date: 20240711
  Receipt Date: 20240711
  Transmission Date: 20241017
  Serious: No
  Sender: SANOFI AVENTIS
  Company Number: US-SA-SAC20240710000807

PATIENT
  Age: 78 Year
  Sex: Male
  Weight: 58.5 kg

DRUGS (7)
  1. DUPIXENT [Suspect]
     Active Substance: DUPILUMAB
     Indication: Nasal polyps
     Dosage: 300 MG, QOW
     Route: 058
     Dates: start: 20240412
  2. DUPIXENT [Suspect]
     Active Substance: DUPILUMAB
     Indication: Peripheral vascular disorder
  3. DUPIXENT [Suspect]
     Active Substance: DUPILUMAB
     Indication: Embolism venous
  4. DUPIXENT [Suspect]
     Active Substance: DUPILUMAB
     Indication: Glaucoma
  5. DUPIXENT [Suspect]
     Active Substance: DUPILUMAB
     Indication: Essential hypertension
  6. DUPIXENT [Suspect]
     Active Substance: DUPILUMAB
     Indication: Type 2 diabetes mellitus
  7. DUPIXENT [Suspect]
     Active Substance: DUPILUMAB
     Indication: Post procedural complication

REACTIONS (1)
  - Product use in unapproved indication [Unknown]

NARRATIVE: CASE EVENT DATE: 20240412
